FAERS Safety Report 4723664-1 (Version None)
Quarter: 2005Q3

REPORT INFORMATION
  Report Type: 
  Country: None (occurrence: None)
  Receive Date: 20050722
  Receipt Date: 20050719
  Transmission Date: 20060218
  Serious: Yes (Death, Other)
  Sender: FDA-Public Use
  Company Number: 05-07-1232

PATIENT
  Age: 38 Year
  Sex: Male

DRUGS (1)
  1. CLOZAPINE [Suspect]
     Indication: SCHIZOPHRENIA, PARANOID TYPE
     Dosage: 800MG QD ORAL
     Route: 048
     Dates: start: 20000101, end: 20050701

REACTIONS (2)
  - CARDIAC DISORDER [None]
  - INFECTION [None]
